FAERS Safety Report 10172930 (Version 1)
Quarter: 2014Q2

REPORT INFORMATION
  Report Type: Spontaneous
  Country: US (occurrence: None)
  Receive Date: 20140514
  Receipt Date: 20140514
  Transmission Date: 20141212
  Serious: Yes (Hospitalization)
  Sender: FDA-Public Use
  Company Number: None

PATIENT
  Age: 56 Year
  Sex: Female
  Weight: 130 kg

DRUGS (12)
  1. INVOKANA [Suspect]
     Indication: DIABETES MELLITUS
     Dosage: 1 PILL, QD, ORAL
     Route: 048
  2. LEVOTHYROXINE [Concomitant]
  3. METOPROLOL TARTARATE [Concomitant]
  4. LISINOPRIL [Concomitant]
  5. INSULIN DETEMIR [Concomitant]
  6. INSULIN ASPART [Concomitant]
  7. GABAPENTIN [Concomitant]
  8. FENOFIBRATE [Concomitant]
  9. EXENATIDE [Concomitant]
  10. CO Q-10 [Concomitant]
  11. ATORVASTATIN [Concomitant]
  12. AMITRIPTYLINE [Concomitant]

REACTIONS (2)
  - Hydronephrosis [None]
  - Pelvi-ureteric obstruction [None]
